FAERS Safety Report 9339969 (Version 1)
Quarter: 2013Q2

REPORT INFORMATION
  Report Type: Other
  Country: GB (occurrence: GB)
  Receive Date: 20130610
  Receipt Date: 20130610
  Transmission Date: 20140414
  Serious: Yes (Hospitalization)
  Sender: FDA-Public Use
  Company Number: GB-WATSON-2013-10159

PATIENT
  Age: 72 Year
  Sex: Male

DRUGS (1)
  1. LEVETIRACETAM (UNKNOWN) [Suspect]
     Indication: EPILEPSY
     Dosage: 500 MG, BID
     Route: 048
     Dates: start: 20130220, end: 20130501

REACTIONS (5)
  - Agitation [Recovering/Resolving]
  - Aggression [Recovering/Resolving]
  - Personality change [Recovering/Resolving]
  - Cognitive disorder [Recovering/Resolving]
  - Condition aggravated [Unknown]
